FAERS Safety Report 15713849 (Version 2)
Quarter: 2018Q4

REPORT INFORMATION
  Report Type: Spontaneous
  Country: ES (occurrence: ES)
  Receive Date: 20181212
  Receipt Date: 20181220
  Transmission Date: 20190205
  Serious: Yes (Other)
  Sender: FDA-Public Use
  Company Number: ES-JNJFOC-20140719645

PATIENT

DRUGS (2)
  1. NILOTINIB [Suspect]
     Active Substance: NILOTINIB
     Indication: SARCOMA
     Dosage: DAY 1 TO DAY 6
     Route: 048
  2. DOXORUBICIN HYDROCHLORIDE. [Suspect]
     Active Substance: DOXORUBICIN HYDROCHLORIDE
     Indication: SARCOMA
     Dosage: ON DAY 5; 60 MG/M2; DOSE-ESCALATION LEVELS: 65 MG/M2 AND 75 MG/M2
     Route: 042

REACTIONS (33)
  - Asthenia [Unknown]
  - Gamma-glutamyltransferase increased [Unknown]
  - Anaemia [Unknown]
  - Mucosal inflammation [Unknown]
  - Constipation [Unknown]
  - Phlebitis [Unknown]
  - Abdominal pain [Unknown]
  - Insomnia [Unknown]
  - Arthralgia [Unknown]
  - Alopecia [Unknown]
  - Dyspnoea [Unknown]
  - Haematuria [Unknown]
  - Aspartate aminotransferase increased [Unknown]
  - Pyrexia [Unknown]
  - Diarrhoea [Unknown]
  - Dizziness [Unknown]
  - Product use in unapproved indication [Unknown]
  - Blood alkaline phosphatase increased [Unknown]
  - Alanine aminotransferase increased [Unknown]
  - Palpitations [Unknown]
  - Hyperhidrosis [Unknown]
  - Nausea [Unknown]
  - Weight decreased [Unknown]
  - Thrombocytopenia [Unknown]
  - Vomiting [Unknown]
  - Dyspepsia [Unknown]
  - Headache [Unknown]
  - Neutropenia [Unknown]
  - Febrile neutropenia [Unknown]
  - Tremor [Unknown]
  - Anxiety [Unknown]
  - Decreased appetite [Unknown]
  - Off label use [Unknown]
